FAERS Safety Report 5065678-0 (Version None)
Quarter: 2006Q3

REPORT INFORMATION
  Report Type: 
  Country: None (occurrence: None)
  Receive Date: 20060714
  Receipt Date: 20060522
  Transmission Date: 20061208
  Serious: No
  Sender: FDA-Public Use
  Company Number: 2006SP002168

PATIENT
  Age: 42 Year
  Sex: Female
  Weight: 65.7716 kg

DRUGS (4)
  1. LUNESTA [Suspect]
     Indication: INSOMNIA
     Dosage: ORAL
     Route: 048
     Dates: start: 20060501, end: 20060501
  2. ABILIFY [Concomitant]
  3. CYMBALTA [Concomitant]
  4. LOTREL [Concomitant]

REACTIONS (2)
  - BREATH ODOUR [None]
  - DYSGEUSIA [None]
